FAERS Safety Report 6026175-9 (Version None)
Quarter: 2008Q4

REPORT INFORMATION
  Report Type: 
  Country: None (occurrence: None)
  Receive Date: 20081222
  Receipt Date: 20080902
  Transmission Date: 20090506
  Serious: No
  Sender: FDA-Public Use
  Company Number: ALL1-2008-02485

PATIENT
  Age: 25 Year
  Sex: Male
  Weight: 108.8 kg

DRUGS (2)
  1. VYVANSE [Suspect]
     Indication: ATTENTION DEFICIT/HYPERACTIVITY DISORDER
     Dosage: 30 MG, 1X/DAY: QD, ORAL
     Route: 048
     Dates: start: 20080722, end: 20080724
  2. METHADONE HCL [Concomitant]

REACTIONS (1)
  - DRUG HYPERSENSITIVITY [None]
